FAERS Safety Report 23913186 (Version 1)
Quarter: 2024Q2

REPORT INFORMATION
  Report Type: Spontaneous
  Country: US (occurrence: US)
  Receive Date: 20240529
  Receipt Date: 20240529
  Transmission Date: 20240715
  Serious: No
  Sender: FDA-Public Use
  Company Number: US-HALEON-2177985

PATIENT
  Age: 66 Year
  Sex: Female

DRUGS (1)
  1. SENSODYNE SENSITIVITY AND GUM WHITENING [Suspect]
     Active Substance: STANNOUS FLUORIDE
     Indication: Product used for unknown indication
     Dosage: EXPDATE:202411

REACTIONS (3)
  - Gingival swelling [Recovered/Resolved]
  - Gingival bleeding [Unknown]
  - Gingival pain [Unknown]
